FAERS Safety Report 7190420-7 (Version None)
Quarter: 2010Q4

REPORT INFORMATION
  Report Type: 
  Country: None (occurrence: None)
  Receive Date: 20101223
  Receipt Date: 20101210
  Transmission Date: 20110411
  Serious: Yes (Other)
  Sender: FDA-Public Use
  Company Number: US-ELI_LILLY_AND_COMPANY-US201012003444

PATIENT
  Sex: Female

DRUGS (1)
  1. HUMULIN N [Suspect]

REACTIONS (6)
  - BLOOD GLUCOSE INCREASED [None]
  - DYSPNOEA [None]
  - HEART RATE INCREASED [None]
  - RESPIRATORY RATE INCREASED [None]
  - SOMNOLENCE [None]
  - SWOLLEN TONGUE [None]
